FAERS Safety Report 5276214-8 (Version None)
Quarter: 2007Q1

REPORT INFORMATION
  Report Type: 
  Country: None (occurrence: None)
  Receive Date: 20070326
  Receipt Date: 20070321
  Transmission Date: 20070707
  Serious: Yes (Life-Threatening, Hospitalization)
  Sender: FDA-Public Use
  Company Number: GB-BOEHRINGER INGELHEIM PHARMACEUTICALS, INC.-2006-UK-03182UK

PATIENT
  Age: 69 Year
  Sex: Female

DRUGS (8)
  1. DIPYRIDAMOLE [Suspect]
     Indication: CEREBROVASCULAR ACCIDENT
     Dosage: 2/1 DAYS
     Route: 048
     Dates: end: 20060529
  2. ASPIRIN [Suspect]
     Indication: CEREBROVASCULAR ACCIDENT
     Dosage: 1/1 DAYS
     Route: 048
     Dates: end: 20060529
  3. BENDROFLUMETHIAZIDE [Concomitant]
     Indication: BLOOD PRESSURE INCREASED
     Dosage: 1/1 DAYS
     Route: 048
  4. HUMULIN M3 [Concomitant]
     Indication: DIABETES MELLITUS
     Dosage: 2/1 DAYS
     Route: 058
  5. PERINDOPRIL ERBUMINE [Concomitant]
     Indication: BLOOD PRESSURE INCREASED
     Dosage: 1/1 DAYS
  6. QUININE [Concomitant]
     Indication: MUSCLE SPASMS
     Dosage: 1/1 DAYS
     Route: 048
  7. SIMVASTATIN [Concomitant]
     Indication: BLOOD CHOLESTEROL
     Dosage: 1/1 DAYS
     Route: 048
  8. MULTI-VITAMIN PREPERATION [Concomitant]
     Dosage: 1 DAY FEQUENTLY

REACTIONS (5)
  - ASTHENIA [None]
  - DIZZINESS [None]
  - GASTRIC ULCER [None]
  - LETHARGY [None]
  - VOMITING [None]
